FAERS Safety Report 8595545-7 (Version None)
Quarter: 2012Q3

REPORT INFORMATION
  Report Type: 
  Country: None (occurrence: None)
  Receive Date: 20120815
  Receipt Date: 20120809
  Transmission Date: 20120928
  Serious: Yes (Hospitalization)
  Sender: FDA-Public Use
  Company Number: FR-B.I. PHARMACEUTICALS,INC./RIDGEFIELD-2012-FF-01054FF

PATIENT
  Sex: Male

DRUGS (3)
  1. ISENTRESS [Suspect]
     Indication: HIV INFECTION
     Dosage: 800 MG
     Route: 048
     Dates: start: 20120522, end: 20120612
  2. EPIVIR [Suspect]
     Indication: HIV INFECTION
     Dosage: 150 MG
     Route: 048
     Dates: start: 20120522, end: 20120612
  3. VIRAMUNE [Suspect]
     Indication: HIV INFECTION
     Dosage: 400 MG
     Route: 048
     Dates: start: 20120522, end: 20120612

REACTIONS (1)
  - CHOLESTASIS [None]
